FAERS Safety Report 8483290-8 (Version None)
Quarter: 2012Q3

REPORT INFORMATION
  Report Type: 
  Country: None (occurrence: None)
  Receive Date: 20120702
  Receipt Date: 20120622
  Transmission Date: 20120928
  Serious: Yes (Other)
  Sender: FDA-Public Use
  Company Number: US-BAYER-2012-063389

PATIENT
  Age: 6 Year
  Sex: Female
  Weight: 24 kg

DRUGS (2)
  1. ASCORBIC ACID [Concomitant]
  2. ASPIRIN [Suspect]
     Dosage: 2 TAB
     Route: 048
     Dates: start: 20120615

REACTIONS (5)
  - APHAGIA [None]
  - MALAISE [None]
  - INFLUENZA LIKE ILLNESS [None]
  - LETHARGY [None]
  - ABDOMINAL PAIN UPPER [None]
